FAERS Safety Report 8837306 (Version 2)
Quarter: 2013Q1

REPORT INFORMATION
  Report Type: Spontaneous
  Country: US (occurrence: US)
  Receive Date: 20121012
  Receipt Date: 20130103
  Transmission Date: 20140127
  Serious: Yes (Hospitalization)
  Sender: FDA-Public Use
  Company Number: US-PFIZER INC-2012249930

PATIENT
  Age: 52 Year
  Sex: Male
  Weight: 111.57 kg

DRUGS (15)
  1. NEURONTIN [Suspect]
     Indication: NEUROPATHY PERIPHERAL
     Dosage: 600 MG, 3X/DAY
     Route: 048
  2. TOPROL XL [Concomitant]
     Dosage: 200 MG, 1X/DAY
     Route: 048
  3. CALCIUM CHLORIDE [Concomitant]
     Dosage: 20 MG, 2X/DAY
     Route: 048
  4. SIMVASTATIN [Concomitant]
     Dosage: 20 MG, 1X/DAY
     Route: 048
  5. DOCUSATE /SENNA [Concomitant]
     Dosage: UNK, 1X/DAY
     Route: 048
  6. HUMULIN R [Concomitant]
     Indication: TYPE 1 DIABETES MELLITUS
     Dosage: 30 IU, UNK
  7. LORTAB [Concomitant]
     Indication: PAIN
     Dosage: 7.5/500 MG, AS NEEDED
     Route: 048
  8. PLAVIX [Concomitant]
     Dosage: 75 MG, 1X/DAY
     Route: 048
  9. LASIX [Concomitant]
     Dosage: 20 MG, 1X/DAY
     Route: 048
  10. ALLOPURINOL [Concomitant]
     Dosage: 100 MG, 2X/DAY
     Route: 048
  11. ASPIRIN [Concomitant]
     Dosage: 81 MG, 1X/DAY
     Route: 048
  12. SYNTHROID [Concomitant]
     Indication: HYPERTHYROIDISM
     Dosage: 50 MG, 1X/DAY
     Route: 048
  13. COZAAR [Concomitant]
     Indication: HYPERTENSION
     Dosage: 100 MG, UNK
     Route: 048
  14. HYDRALAZINE HYDROCHLORIDE [Concomitant]
     Dosage: 50 MG, EVERY 8 HOURS
     Route: 048
  15. LANTUS [Concomitant]
     Indication: TYPE 1 DIABETES MELLITUS
     Dosage: 60 IU, 2X/DAY

REACTIONS (5)
  - Cystitis [Recovered/Resolved]
  - Syncope [Recovered/Resolved]
  - Abasia [Recovered/Resolved]
  - Dizziness [Recovered/Resolved]
  - Loss of consciousness [Recovered/Resolved]
